FAERS Safety Report 23066426 (Version 1)
Quarter: 2023Q4

REPORT INFORMATION
  Report Type: Spontaneous
  Country: US (occurrence: US)
  Receive Date: 20231015
  Receipt Date: 20231015
  Transmission Date: 20240109
  Serious: No
  Sender: FDA-Public Use
  Company Number: US-ELI_LILLY_AND_COMPANY-US202310004741

PATIENT
  Age: 53 Year
  Sex: Female

DRUGS (10)
  1. HUMALOG MIX75/25 [Suspect]
     Active Substance: INSULIN LISPRO
     Indication: Type 2 diabetes mellitus
     Dosage: 40 U, EACH MORNING
     Route: 065
     Dates: start: 2021
  2. HUMALOG MIX75/25 [Suspect]
     Active Substance: INSULIN LISPRO
     Dosage: 38 U, EACH EVENING
     Route: 065
     Dates: start: 2021
  3. URSODIOL [Concomitant]
     Active Substance: URSODIOL
     Indication: Liver disorder
  4. ATORVASTATIN [Concomitant]
     Active Substance: ATORVASTATIN
     Indication: Product used for unknown indication
  5. VITAMIN D NOS [Concomitant]
     Active Substance: VITAMIN D NOS
     Indication: Product used for unknown indication
  6. LISINOPRIL [Concomitant]
     Active Substance: LISINOPRIL
     Indication: Product used for unknown indication
  7. FAMOTIDINE [Concomitant]
     Active Substance: FAMOTIDINE
     Indication: Product used for unknown indication
  8. PANTOPRAZOLE [Concomitant]
     Active Substance: PANTOPRAZOLE
     Indication: Product used for unknown indication
  9. OCALIVA [Concomitant]
     Active Substance: OBETICHOLIC ACID
     Indication: Liver disorder
  10. DULOXETINE [Concomitant]
     Active Substance: DULOXETINE
     Indication: Gastrointestinal disorder

REACTIONS (4)
  - Nervousness [Unknown]
  - Feeling abnormal [Unknown]
  - Product dose omission issue [Unknown]
  - Injection site mass [Unknown]

NARRATIVE: CASE EVENT DATE: 20231005
